FAERS Safety Report 11376761 (Version 2)
Quarter: 2015Q4

REPORT INFORMATION
  Report Type: Spontaneous
  Country: US (occurrence: US)
  Receive Date: 20150813
  Receipt Date: 20151013
  Transmission Date: 20160304
  Serious: Yes (Life-Threatening, Hospitalization, Other)
  Sender: FDA-Public Use
  Company Number: US-BAYER-2015-400031

PATIENT
  Age: 21 Year
  Sex: Female
  Weight: 72.56 kg

DRUGS (4)
  1. BETADINE [Concomitant]
     Active Substance: POVIDONE-IODINE
     Dosage: UNK
     Dates: start: 20150422
  2. MARCAINE [Concomitant]
     Active Substance: BUPIVACAINE HYDROCHLORIDE
     Dosage: UNK
     Dates: start: 20150422
  3. MIRENA [Suspect]
     Active Substance: LEVONORGESTREL
     Indication: CONTRACEPTION
     Dosage: 20 MCG/24HR, CONT
     Route: 015
     Dates: start: 20120531, end: 20150422
  4. IBUPROFEN. [Concomitant]
     Active Substance: IBUPROFEN
     Dosage: 200 MG, UNK
     Dates: start: 20120531

REACTIONS (10)
  - Pain [None]
  - General physical health deterioration [None]
  - Anhedonia [None]
  - Emotional distress [None]
  - Device issue [None]
  - Uterine perforation [None]
  - Genital haemorrhage [None]
  - Injury [None]
  - Anxiety [None]
  - Depression [None]

NARRATIVE: CASE EVENT DATE: 201206
